FAERS Safety Report 9981430 (Version 1)
Quarter: 2014Q1

REPORT INFORMATION
  Report Type: Spontaneous
  Country: US (occurrence: US)
  Receive Date: 20140307
  Receipt Date: 20140307
  Transmission Date: 20141002
  Serious: Yes (Other)
  Sender: FDA-Public Use
  Company Number: US-BRISTOL-MYERS SQUIBB COMPANY-20341988

PATIENT
  Sex: Female

DRUGS (1)
  1. WARFARIN SODIUM [Suspect]
     Dosage: RED TO 3MG

REACTIONS (4)
  - Wrist fracture [Unknown]
  - Dizziness [Unknown]
  - Fall [Unknown]
  - Vision blurred [Unknown]
